FAERS Safety Report 5847915-5 (Version None)
Quarter: 2008Q3

REPORT INFORMATION
  Report Type: 
  Country: None (occurrence: None)
  Receive Date: 20080814
  Receipt Date: 20080728
  Transmission Date: 20090109
  Serious: Yes (Other)
  Sender: FDA-Public Use
  Company Number: 8021851

PATIENT
  Age: 21 Year
  Sex: Female
  Weight: 70 kg

DRUGS (7)
  1. XYZAL [Suspect]
     Dosage: 50 MG ONCE
  2. ACETYLCYSTEINE [Suspect]
     Dosage: 4200 MG ONCE
  3. CODICOMPREN [Suspect]
     Dosage: 500 MG ONCE
  4. COTRIM [Suspect]
     Dosage: 10 DF ONCE
  5. GRUNCEF [Suspect]
     Dosage: 10 G ONCE
  6. ACETAMINOPHEN [Suspect]
     Dosage: 3 G ONCE
  7. SPASMO-MUCOSOLVAN [Suspect]
     Dosage: 10 DF ONCE

REACTIONS (3)
  - MULTIPLE DRUG OVERDOSE INTENTIONAL [None]
  - SUICIDE ATTEMPT [None]
  - VOMITING [None]
